FAERS Safety Report 15316746 (Version 1)
Quarter: 2018Q3

REPORT INFORMATION
  Report Type: Spontaneous
  Country: GB (occurrence: GB)
  Receive Date: 20180824
  Receipt Date: 20180824
  Transmission Date: 20181010
  Serious: Yes (Other)
  Sender: FDA-Public Use
  Company Number: GB-009507513-2011SP019063

PATIENT
  Age: 17 Year
  Sex: Female

DRUGS (4)
  1. PENICILLIN (UNSPECIFIED) [Interacting]
     Active Substance: PENICILLIN
     Indication: TONSILLITIS
     Dosage: 250 MG, QID
     Route: 048
     Dates: start: 20110310, end: 20110317
  2. AZITHROMYCIN ANHYDROUS. [Interacting]
     Active Substance: AZITHROMYCIN ANHYDROUS
     Indication: CHLAMYDIAL INFECTION
     Dosage: 1 G, TAKEN INMEDIATELY
     Route: 048
     Dates: start: 20110310
  3. FLOXACILLIN [Interacting]
     Active Substance: FLUCLOXACILLIN
     Indication: SKIN INFECTION
     Route: 048
     Dates: start: 20101125, end: 20101130
  4. IMPLANON [Suspect]
     Active Substance: ETONOGESTREL
     Indication: PRODUCT USED FOR UNKNOWN INDICATION
     Route: 058
     Dates: start: 20101020

REACTIONS (5)
  - Pregnancy with implant contraceptive [Unknown]
  - Drug interaction [Unknown]
  - Tonsillitis [Unknown]
  - Skin infection [Unknown]
  - Chlamydial infection [Unknown]

NARRATIVE: CASE EVENT DATE: 20110325
